FAERS Safety Report 6576002-6 (Version None)
Quarter: 2010Q1

REPORT INFORMATION
  Report Type: 
  Country: None (occurrence: None)
  Receive Date: 20100209
  Receipt Date: 20100126
  Transmission Date: 20100710
  Serious: Yes (Other)
  Sender: FDA-Public Use
  Company Number: PHHY2010US04468

PATIENT
  Sex: Male
  Weight: 83.9 kg

DRUGS (7)
  1. GLEEVEC [Suspect]
     Indication: CHRONIC MYELOID LEUKAEMIA
     Dosage: 200 MG, QD
     Route: 048
     Dates: start: 20090622
  2. GLEEVEC [Suspect]
     Dosage: NO TREATMENT
  3. GLEEVEC [Suspect]
     Dosage: 200 MG, QD
     Route: 048
  4. TOPROL-XL [Concomitant]
     Indication: HYPERTENSION
     Dosage: 100 MG, QD
     Route: 048
  5. CARDURA                                 /IRE/ [Concomitant]
     Indication: HYPERTENSION
     Dosage: 2 MG, QD
     Route: 048
  6. SERZONE [Concomitant]
     Indication: HYPERTENSION
     Dosage: 150 MG, QD
     Route: 048
  7. XANAX [Concomitant]
     Indication: ANXIETY
     Dosage: 0.5 MG, QD PRN
     Route: 048

REACTIONS (8)
  - APHASIA [None]
  - CEREBROVASCULAR ACCIDENT [None]
  - CONFUSIONAL STATE [None]
  - DISORIENTATION [None]
  - DRUG DOSE OMISSION [None]
  - FEELING ABNORMAL [None]
  - STRESS [None]
  - TRANSIENT ISCHAEMIC ATTACK [None]
